FAERS Safety Report 12968347 (Version 2)
Quarter: 2016Q4

REPORT INFORMATION
  Report Type: Spontaneous
  Country: CN (occurrence: CN)
  Receive Date: 20161123
  Receipt Date: 20161215
  Transmission Date: 20170207
  Serious: Yes (Hospitalization)
  Sender: FDA-Public Use
  Company Number: CN-GLAXOSMITHKLINE-CN2016GSK172185

PATIENT
  Sex: Female

DRUGS (1)
  1. SERETIDE [Suspect]
     Active Substance: FLUTICASONE PROPIONATE\SALMETEROL XINAFOATE
     Indication: ASTHMA
     Dosage: UNK
     Route: 055

REACTIONS (4)
  - Product quality issue [Unknown]
  - Drug ineffective [Unknown]
  - Asthma [Unknown]
  - Drug dose omission [Unknown]
